FAERS Safety Report 9888285 (Version 1)
Quarter: 2014Q1

REPORT INFORMATION
  Report Type: Spontaneous
  Country: US (occurrence: US)
  Receive Date: 20140211
  Receipt Date: 20140211
  Transmission Date: 20141002
  Serious: No
  Sender: FDA-Public Use
  Company Number: US-PFIZER INC-2014034541

PATIENT
  Age: 85 Year
  Sex: Female

DRUGS (9)
  1. ZITHROMAX [Suspect]
     Dosage: UNK
  2. ATIVAN [Suspect]
     Dosage: UNK
  3. PANTOPRAZOLE [Suspect]
     Dosage: UNK
  4. CIPROFLOXACIN [Suspect]
     Dosage: UNK
  5. PLAVIX [Suspect]
     Dosage: UNK
  6. NEXIUM [Suspect]
     Dosage: UNK
  7. FENOFIBRATE [Suspect]
     Dosage: UNK
  8. METFORMIN [Suspect]
     Dosage: UNK
  9. AVELOX [Suspect]
     Dosage: UNK

REACTIONS (1)
  - Drug hypersensitivity [Unknown]
